FAERS Safety Report 7617031-0 (Version None)
Quarter: 2011Q3

REPORT INFORMATION
  Report Type: 
  Country: None (occurrence: None)
  Receive Date: 20110718
  Receipt Date: 20090209
  Transmission Date: 20111222
  Serious: Yes (Hospitalization, Other)
  Sender: FDA-Public Use
  Company Number: US-BAYER-200912394NA

PATIENT
  Age: 64 Year
  Sex: Male
  Weight: 113 kg

DRUGS (9)
  1. ALTACE [Concomitant]
     Dosage: 500 MG, BID
     Route: 048
  2. ATENOLOL [Concomitant]
     Dosage: 100 MG, QD
     Route: 048
  3. DILANTIN [Concomitant]
     Dosage: 500 MG, BID
     Route: 048
  4. HEPARIN [Concomitant]
     Dosage: 53000 U, UNK
     Route: 042
     Dates: start: 20041202
  5. TRASYLOL [Suspect]
     Indication: CORONARY ARTERY BYPASS
     Dosage: 100 ML, THEN 50ML/HR
     Route: 042
     Dates: start: 20041202, end: 20041202
  6. SOLU-CORTEF [Concomitant]
     Dosage: 100 MG, UNK
     Route: 042
     Dates: start: 20041202
  7. CRESTOR [Concomitant]
     Dosage: 20 MG, QD
     Route: 048
  8. ACETYLSALICYLIC ACID SRT [Concomitant]
     Dosage: 81 MG, QD
     Route: 048
  9. DOBUTAMINE HCL [Concomitant]
     Dosage: 5 MCG PER KG PER MINUTE
     Route: 042
     Dates: start: 20041202

REACTIONS (5)
  - RENAL FAILURE ACUTE [None]
  - INJURY [None]
  - PAIN [None]
  - RENAL FAILURE [None]
  - UNEVALUABLE EVENT [None]
